FAERS Safety Report 5402419-9 (Version None)
Quarter: 2007Q3

REPORT INFORMATION
  Report Type: 
  Country: None (occurrence: None)
  Receive Date: 20070730
  Receipt Date: 20070730
  Transmission Date: 20080115
  Serious: Yes (Other)
  Sender: FDA-Public Use
  Company Number: None

PATIENT
  Age: 32 Year
  Sex: Male
  Weight: 110.2241 kg

DRUGS (1)
  1. LARIAM [Suspect]
     Indication: MALARIA PROPHYLAXIS
     Dosage: 1 TABLET WEEKLY
     Dates: start: 20070412, end: 20070608

REACTIONS (20)
  - AFFECT LABILITY [None]
  - AMNESIA [None]
  - ANGER [None]
  - ANXIETY [None]
  - CONFUSIONAL STATE [None]
  - CRYING [None]
  - DEPRESSION [None]
  - DISTURBANCE IN ATTENTION [None]
  - DIZZINESS [None]
  - FEELING ABNORMAL [None]
  - HEADACHE [None]
  - IRRITABILITY [None]
  - MEMORY IMPAIRMENT [None]
  - MOOD ALTERED [None]
  - MOOD SWINGS [None]
  - MOTOR DYSFUNCTION [None]
  - PARANOIA [None]
  - SOCIAL AVOIDANT BEHAVIOUR [None]
  - THINKING ABNORMAL [None]
  - VIOLENCE-RELATED SYMPTOM [None]
